FAERS Safety Report 7049537-X (Version None)
Quarter: 2010Q4

REPORT INFORMATION
  Report Type: 
  Country: None (occurrence: None)
  Receive Date: 20101018
  Receipt Date: 20101008
  Transmission Date: 20110411
  Serious: Yes (Hospitalization)
  Sender: FDA-Public Use
  Company Number: FR-PFIZER INC-2010128093

PATIENT
  Age: 74 Year
  Sex: Female

DRUGS (11)
  1. TAHOR [Suspect]
     Dosage: 80 MG, 1X/DAY
     Route: 048
  2. PREVISCAN [Interacting]
     Indication: STRESS CARDIOMYOPATHY
     Dosage: UNK
     Route: 048
     Dates: start: 20100701, end: 20100730
  3. CORDARONE [Interacting]
     Dosage: 200 MG, 1X/DAY
     Route: 048
  4. PERINDOPRIL ERBUMINE [Concomitant]
     Dosage: 2.5MG, UNK
  5. INIPOMP [Concomitant]
     Dosage: 20MG, UNK
  6. EQUANIL [Concomitant]
     Dosage: 250MG, UNK
  7. VITAMIN B1 AND B6 [Concomitant]
     Dosage: UNK
  8. CARDENSIEL [Concomitant]
     Dosage: 1.25MG, UNK
  9. LASIX [Concomitant]
     Dosage: 40MG, UNK
  10. DIFFU K [Concomitant]
     Dosage: UNK
  11. AOTAL [Concomitant]
     Indication: ALCOHOLISM
     Dosage: UNK, 6 TIMES DAILY
     Dates: start: 20100708

REACTIONS (3)
  - DRUG INTERACTION [None]
  - INTERNATIONAL NORMALISED RATIO INCREASED [None]
  - SUBDURAL HAEMATOMA [None]
